FAERS Safety Report 16684427 (Version 2)
Quarter: 2019Q3

REPORT INFORMATION
  Report Type: Report from Study
  Country: CA (occurrence: US)
  Receive Date: 20190808
  Receipt Date: 20190904
  Transmission Date: 20191004
  Serious: Yes (Hospitalization, Other)
  Sender: FDA-Public Use
  Company Number: CA-MYLANLABS-2019M1073259

PATIENT
  Sex: Male

DRUGS (2)
  1. MARIJUANA [Suspect]
     Active Substance: CANNABIS SATIVA SUBSP. INDICA TOP
     Indication: PRODUCT USED FOR UNKNOWN INDICATION
     Dosage: UNK
  2. CLOZAPINE. [Suspect]
     Active Substance: CLOZAPINE
     Indication: PRODUCT USED FOR UNKNOWN INDICATION
     Dosage: UNK

REACTIONS (10)
  - Posture abnormal [Unknown]
  - Weight increased [Unknown]
  - Constipation [Unknown]
  - Gastric dilatation [Unknown]
  - Drug dependence [Unknown]
  - Cardiac disorder [Unknown]
  - Frequent bowel movements [Unknown]
  - Rectal prolapse [Unknown]
  - Cerebral haemorrhage [Unknown]
  - Seizure [Unknown]
